FAERS Safety Report 7607205-7 (Version None)
Quarter: 2011Q3

REPORT INFORMATION
  Report Type: 
  Country: None (occurrence: None)
  Receive Date: 20110712
  Receipt Date: 20110712
  Transmission Date: 20111222
  Serious: Yes (Hospitalization)
  Sender: FDA-Public Use
  Company Number: None

PATIENT
  Age: 29 Year
  Sex: Female
  Weight: 84 kg

DRUGS (1)
  1. ETHINYL ESTRADIOL/ETONOGESTREL [Suspect]
     Indication: ENDOMETRIOSIS
     Dosage: 1 UNITS OTHER OTHER
     Route: 050
     Dates: start: 20080914, end: 20110614

REACTIONS (2)
  - MESENTERIC VEIN THROMBOSIS [None]
  - PANCREATITIS [None]
